FAERS Safety Report 14396011 (Version 1)
Quarter: 2018Q1

REPORT INFORMATION
  Report Type: Spontaneous
  Country: US (occurrence: US)
  Receive Date: 20180116
  Receipt Date: 20180116
  Transmission Date: 20180509
  Serious: Yes (Other)
  Sender: FDA-Public Use
  Company Number: US-FRESENIUS KABI-FK201800578

PATIENT
  Age: 70 Year
  Sex: Male

DRUGS (2)
  1. LIDOCAINE/EPINEPHRINE (MANUFACTURER UNKNOWN) [Suspect]
     Active Substance: EPINEPHRINE BITARTRATE\LIDOCAINE HYDROCHLORIDE
     Indication: NERVE BLOCK
     Route: 008
     Dates: start: 2015, end: 2015
  2. LIDOCAINE/EPINEPHRINE (MANUFACTURER UNKNOWN) [Suspect]
     Active Substance: EPINEPHRINE BITARTRATE\LIDOCAINE HYDROCHLORIDE
     Route: 065
     Dates: start: 2015, end: 2015

REACTIONS (1)
  - Atrial fibrillation [Unknown]

NARRATIVE: CASE EVENT DATE: 2015
